FAERS Safety Report 16715286 (Version 2)
Quarter: 2019Q4

REPORT INFORMATION
  Report Type: Spontaneous
  Country: TW (occurrence: TW)
  Receive Date: 20190819
  Receipt Date: 20191007
  Transmission Date: 20200122
  Serious: Yes (Life-Threatening, Other)
  Sender: FDA-Public Use
  Company Number: TW-ASTELLAS-2019US032695

PATIENT
  Age: 75 Year
  Sex: Male

DRUGS (2)
  1. XTANDI [Suspect]
     Active Substance: ENZALUTAMIDE
     Indication: HORMONE-REFRACTORY PROSTATE CANCER
     Route: 048
     Dates: start: 20190711, end: 20190725
  2. ELIGARD [Concomitant]
     Active Substance: LEUPROLIDE ACETATE
     Indication: PROSTATE CANCER
     Dosage: 22.5 MG, EVERY 3 MONTHS
     Route: 058

REACTIONS (2)
  - Suicidal ideation [Unknown]
  - Muscle spasms [Unknown]

NARRATIVE: CASE EVENT DATE: 201907
